FAERS Safety Report 10050054 (Version 1)
Quarter: 2014Q1

REPORT INFORMATION
  Report Type: Spontaneous
  Country: US (occurrence: None)
  Receive Date: 20140331
  Receipt Date: 20140331
  Transmission Date: 20141002
  Serious: Yes (Other)
  Sender: FDA-Public Use
  Company Number: None

PATIENT
  Age: 81 Year
  Sex: Male

DRUGS (1)
  1. ZYTIGA [Suspect]
     Dosage: 4 TABS
     Route: 048
     Dates: start: 20130504

REACTIONS (2)
  - Drug dose omission [None]
  - Prostatic specific antigen increased [None]
